FAERS Safety Report 6763378-X (Version None)
Quarter: 2010Q2

REPORT INFORMATION
  Report Type: 
  Country: None (occurrence: None)
  Receive Date: 20100610
  Receipt Date: 20100608
  Transmission Date: 20101027
  Serious: No
  Sender: FDA-Public Use
  Company Number: US-ROXANE LABORATORIES, INC.-2010-RO-00702RO

PATIENT
  Sex: Male

DRUGS (3)
  1. MORPHINE [Suspect]
  2. ZANTAC [Concomitant]
  3. MYLANTA [Concomitant]

REACTIONS (3)
  - NAUSEA [None]
  - VOMITING [None]
  - WRONG TECHNIQUE IN DRUG USAGE PROCESS [None]
